FAERS Safety Report 5628411-7 (Version None)
Quarter: 2008Q1

REPORT INFORMATION
  Report Type: 
  Country: None (occurrence: None)
  Receive Date: 20080131
  Receipt Date: 20071225
  Transmission Date: 20080703
  Serious: No
  Sender: FDA-Public Use
  Company Number: 163-21880-07121363

PATIENT
  Age: 82 Year
  Sex: Male

DRUGS (5)
  1. REVLIMID [Suspect]
     Indication: MULTIPLE MYELOMA
     Dosage: 5 MG, 1 IN 1 D, ORAL
     Route: 048
     Dates: start: 20071218
  2. TOPRANOL [Concomitant]
  3. ALLOPURINOL [Concomitant]
  4. ARACEPT [Concomitant]
  5. COUMADIN [Concomitant]

REACTIONS (1)
  - DIZZINESS [None]
